FAERS Safety Report 16465027 (Version 1)
Quarter: 2019Q2

REPORT INFORMATION
  Report Type: Spontaneous
  Country: US (occurrence: US)
  Receive Date: 20190621
  Receipt Date: 20190621
  Transmission Date: 20190711
  Serious: Yes (Other)
  Sender: FDA-Public Use
  Company Number: US-VYERA PHARMACEUTICALS, LLC-2019VYE00021

PATIENT
  Age: 34 Year
  Sex: Female
  Weight: 49.89 kg

DRUGS (2)
  1. DARAPRIM [Suspect]
     Active Substance: PYRIMETHAMINE
     Indication: TOXOPLASMOSIS
     Dosage: 50 MG, 1X/DAY WITH FOOD
     Route: 048
     Dates: start: 20190530, end: 20190604
  2. IRON [Concomitant]
     Active Substance: IRON

REACTIONS (11)
  - Hypoaesthesia [Recovered/Resolved]
  - Dyspnoea [Recovered/Resolved]
  - Swelling [Recovered/Resolved]
  - Hypoaesthesia oral [Recovered/Resolved]
  - Mouth swelling [Recovered/Resolved]
  - Face oedema [Recovered/Resolved]
  - Swollen tongue [Recovered/Resolved]
  - Chest discomfort [Recovered/Resolved]
  - Panic attack [Recovering/Resolving]
  - Angioedema [Recovered/Resolved]
  - Dysphagia [Recovered/Resolved]

NARRATIVE: CASE EVENT DATE: 20190602
